FAERS Safety Report 20993690 (Version 4)
Quarter: 2022Q3

REPORT INFORMATION
  Report Type: Spontaneous
  Country: US (occurrence: US)
  Receive Date: 20220622
  Receipt Date: 20220722
  Transmission Date: 20221027
  Serious: Yes (Other)
  Sender: FDA-Public Use
  Company Number: US-JNJFOC-20220629775

PATIENT
  Age: 52 Year
  Sex: Female

DRUGS (22)
  1. ELMIRON [Suspect]
     Active Substance: PENTOSAN POLYSULFATE SODIUM
     Indication: Cystitis interstitial
     Route: 048
     Dates: start: 201201, end: 201307
  2. ELMIRON [Suspect]
     Active Substance: PENTOSAN POLYSULFATE SODIUM
     Route: 048
     Dates: start: 201309, end: 201410
  3. ELMIRON [Suspect]
     Active Substance: PENTOSAN POLYSULFATE SODIUM
     Route: 048
     Dates: start: 201412, end: 201701
  4. ONDANSETRON [Concomitant]
     Active Substance: ONDANSETRON
     Indication: Antiemetic supportive care
     Dates: start: 201701, end: 201802
  5. DICLOFENAC SODIUM [Concomitant]
     Active Substance: DICLOFENAC SODIUM
     Indication: Pain management
     Dates: start: 201609, end: 201802
  6. HEPARIN [Concomitant]
     Active Substance: HEPARIN SODIUM
     Indication: Anticoagulant therapy
     Dates: start: 201505, end: 201505
  7. CARISOPRODOL [Concomitant]
     Active Substance: CARISOPRODOL
     Indication: Muscle relaxant therapy
     Dates: start: 201308, end: 201803
  8. OXYCODONE HYDROCHLORIDE [Concomitant]
     Active Substance: OXYCODONE HYDROCHLORIDE
     Indication: Pain management
     Dates: start: 201204, end: 201803
  9. MORPHINE SULFATE [Concomitant]
     Active Substance: MORPHINE SULFATE
     Indication: Pain management
     Dates: start: 201204, end: 201804
  10. LEVOTHYROXINE [Concomitant]
     Active Substance: LEVOTHYROXINE
     Indication: Hormone therapy
     Dates: start: 201403, end: 201509
  11. PHENAZOPYRIDINE [Concomitant]
     Active Substance: PHENAZOPYRIDINE
     Indication: Analgesic therapy
     Dates: start: 201504, end: 201507
  12. ALPRAZOLAM [Concomitant]
     Active Substance: ALPRAZOLAM
     Indication: Sedative therapy
     Dates: start: 201211, end: 201510
  13. ALPRAZOLAM [Concomitant]
     Active Substance: ALPRAZOLAM
     Dates: start: 201605, end: 201904
  14. TEMAZEPAM [Concomitant]
     Active Substance: TEMAZEPAM
     Indication: Sedative therapy
     Dates: start: 201308, end: 201804
  15. URIBEL [Concomitant]
     Active Substance: HYOSCYAMINE SULFATE\METHENAMINE\METHYLENE BLUE\PHENYL SALICYLATE\SODIUM PHOSPHATE, MONOBASIC, MONOHY
     Indication: Urinary tract infection
     Dates: start: 201503, end: 201510
  16. URIBEL [Concomitant]
     Active Substance: HYOSCYAMINE SULFATE\METHENAMINE\METHYLENE BLUE\PHENYL SALICYLATE\SODIUM PHOSPHATE, MONOBASIC, MONOHY
     Indication: Urinary tract discomfort
     Dates: start: 201709, end: 201709
  17. HYDROCHLOROTHIAZIDE [Concomitant]
     Active Substance: HYDROCHLOROTHIAZIDE
     Indication: Diuretic therapy
     Dosage: TILL FEB
     Dates: start: 201504
  18. LIDODERM [Concomitant]
     Active Substance: LIDOCAINE
     Indication: Pain management
     Dates: start: 201607, end: 201709
  19. LIDODERM [Concomitant]
     Active Substance: LIDOCAINE
     Dates: start: 201505, end: 201505
  20. SUMATRIPTAN SUCCINATE [Concomitant]
     Active Substance: SUMATRIPTAN SUCCINATE
     Indication: Pain management
     Dates: start: 201311, end: 201610
  21. NYSTATIN [Concomitant]
     Active Substance: NYSTATIN
     Indication: Fungal infection
     Dates: start: 201709, end: 201709
  22. HYOSCYAMINE [Concomitant]
     Active Substance: HYOSCYAMINE
     Indication: Prophylaxis

REACTIONS (5)
  - Dry age-related macular degeneration [Not Recovered/Not Resolved]
  - Retinopathy [Unknown]
  - Retinal pigmentation [Not Recovered/Not Resolved]
  - Headache [Unknown]
  - Off label use [Unknown]

NARRATIVE: CASE EVENT DATE: 20120101
